FAERS Safety Report 6934987-X (Version None)
Quarter: 2010Q3

REPORT INFORMATION
  Report Type: 
  Country: None (occurrence: None)
  Receive Date: 20100822
  Receipt Date: 20100808
  Transmission Date: 20110219
  Serious: Yes (Other)
  Sender: FDA-Public Use
  Company Number: PHHY2010MX52992

PATIENT
  Age: 64 Year
  Sex: Female

DRUGS (9)
  1. DIOVAN HCT [Suspect]
     Indication: HYPERTENSION
     Dosage: 1 TABLET (160/12.5 MG ) PER DAY
     Dates: start: 20100401
  2. TENORMIN [Concomitant]
  3. CRESTOR [Concomitant]
  4. CONTROLIP [Concomitant]
  5. EZETIMIBE [Concomitant]
  6. ISCOVER [Concomitant]
  7. EVISTA [Concomitant]
  8. LEXOTAN [Concomitant]
  9. BROQUIXOL [Concomitant]

REACTIONS (4)
  - CHEST PAIN [None]
  - FALL [None]
  - LIMB INJURY [None]
  - PHOTOPSIA [None]
